FAERS Safety Report 9176832 (Version 2)
Quarter: 2013Q2

REPORT INFORMATION
  Report Type: Spontaneous
  Country: FR (occurrence: FR)
  Receive Date: 20130321
  Receipt Date: 20130415
  Transmission Date: 20140414
  Serious: Yes (Death)
  Sender: FDA-Public Use
  Company Number: FR-PFIZER INC-2013088844

PATIENT
  Age: 90 Year
  Sex: Male
  Weight: 70 kg

DRUGS (2)
  1. INLYTA [Suspect]
     Indication: RENAL CANCER METASTATIC
     Dosage: 5 MG, 2X/DAY
     Route: 048
     Dates: start: 20130222
  2. DENOSUMAB [Concomitant]
     Indication: METASTASES TO BONE
     Dosage: 120 MG, 1X/DAY
     Route: 058
     Dates: start: 20130223

REACTIONS (2)
  - Pneumonia pneumococcal [Fatal]
  - Cardiac failure [Fatal]
